FAERS Safety Report 9271718 (Version 1)
Quarter: 2013Q2

REPORT INFORMATION
  Report Type: Spontaneous
  Country: US (occurrence: US)
  Receive Date: 20130506
  Receipt Date: 20130506
  Transmission Date: 20140414
  Serious: No
  Sender: FDA-Public Use
  Company Number: US-COVIDIEN/TYCO HEALTHCARE/MALLINCKRODT-T201202649

PATIENT
  Age: 86 Year
  Sex: Male

DRUGS (4)
  1. HYDROCODONE/ACETAMINOPHEN [Suspect]
     Indication: ARTHRITIS
     Dosage: 7.5/325, 1-2 TABLETS
     Route: 048
  2. CAPTOPRIL [Concomitant]
     Indication: CARDIAC DISORDER
  3. DIGOXIN [Concomitant]
     Indication: CARDIAC DISORDER
  4. XANAX [Concomitant]
     Indication: ANXIETY

REACTIONS (2)
  - Hypoaesthesia [Not Recovered/Not Resolved]
  - Asthenia [Not Recovered/Not Resolved]
